FAERS Safety Report 14775982 (Version 4)
Quarter: 2018Q2

REPORT INFORMATION
  Report Type: Report from Study
  Country: GB (occurrence: GB)
  Receive Date: 20180418
  Receipt Date: 20180612
  Transmission Date: 20180711
  Serious: Yes (Other)
  Sender: FDA-Public Use
  Company Number: GB-JNJFOC-20180419166

PATIENT
  Sex: Female

DRUGS (1)
  1. STELARA [Suspect]
     Active Substance: USTEKINUMAB
     Indication: CROHN^S DISEASE
     Dosage: 1ML, 8 WEEKS AFTER INDUCTION
     Route: 058
     Dates: start: 20180209

REACTIONS (7)
  - Lower respiratory tract infection [Unknown]
  - Pain in extremity [Recovering/Resolving]
  - Ear disorder [Unknown]
  - Peripheral swelling [Recovering/Resolving]
  - Cellulitis [Not Recovered/Not Resolved]
  - Crohn^s disease [Recovering/Resolving]
  - Skin discolouration [Unknown]

NARRATIVE: CASE EVENT DATE: 2018
